FAERS Safety Report 9358327 (Version 1)
Quarter: 2013Q2

REPORT INFORMATION
  Report Type: Spontaneous
  Country: US (occurrence: None)
  Receive Date: 20130619
  Receipt Date: 20130619
  Transmission Date: 20140414
  Serious: Yes (Other)
  Sender: FDA-Public Use
  Company Number: None

PATIENT
  Sex: Female

DRUGS (6)
  1. AVEENO POSITIVELY AGELESS FIRMING BODY LOTION [Suspect]
     Route: 061
  2. AVEENO POSITIVELY AGELESS RECONDITIONING NIGHT [Suspect]
     Route: 061
  3. AVEENO POSITIVELY AGELESS DAILY EXFOLIATING CLEANSER [Suspect]
  4. AVEENO POSITIVELY AGELESS DAILY MOISTURIZER SPF 30 [Suspect]
     Route: 061
  5. AVEENO CONTINUOUS PROTECTION SUNBLOCK FACE SPF70 [Suspect]
     Route: 061
  6. AVEENO PROTECT PLUS HYDRATE SUNSCREEN BROAD SPECTRUM SPF70 [Suspect]
     Route: 061

REACTIONS (2)
  - Blood aluminium increased [None]
  - Poisoning [None]
